FAERS Safety Report 24012686 (Version 1)
Quarter: 2024Q2

REPORT INFORMATION
  Report Type: Other
  Country: US (occurrence: US)
  Receive Date: 20240626
  Receipt Date: 20240626
  Transmission Date: 20240716
  Serious: Yes (Hospitalization)
  Sender: FDA-Public Use
  Company Number: US-P+L Developments of Newyork Corporation-2158537

PATIENT
  Age: 68 Year
  Sex: Female

DRUGS (2)
  1. OMEPRAZOLE MAGNESIUM [Suspect]
     Active Substance: OMEPRAZOLE MAGNESIUM
     Indication: Gastrooesophageal reflux disease
     Route: 065
  2. FERROUS SULFATE [Interacting]
     Active Substance: FERROUS SULFATE
     Route: 065

REACTIONS (2)
  - Gastritis [Unknown]
  - Drug interaction [Unknown]
